FAERS Safety Report 5649017-X (Version None)
Quarter: 2008Q1

REPORT INFORMATION
  Report Type: 
  Country: None (occurrence: None)
  Receive Date: 20080304
  Receipt Date: 20080224
  Transmission Date: 20080703
  Serious: Yes (Hospitalization)
  Sender: FDA-Public Use
  Company Number: IT-JNJFOC-20080205533

PATIENT
  Sex: Male
  Weight: 75 kg

DRUGS (7)
  1. PALIPERIDONE [Suspect]
     Route: 048
  2. PALIPERIDONE [Suspect]
     Route: 048
  3. PALIPERIDONE [Suspect]
     Indication: SCHIZOPHRENIA
     Route: 048
  4. RIVOTRIL [Concomitant]
     Route: 048
  5. RIVOTRIL [Concomitant]
     Route: 048
  6. RIVOTRIL [Concomitant]
     Route: 048
  7. RIVOTRIL [Concomitant]
     Indication: DRUG USE FOR UNKNOWN INDICATION
     Route: 048

REACTIONS (3)
  - AGGRESSION [None]
  - ANXIETY [None]
  - TENSION [None]
